FAERS Safety Report 11330377 (Version 1)
Quarter: 2015Q3

REPORT INFORMATION
  Report Type: Spontaneous
  Country: CH (occurrence: CH)
  Receive Date: 20150803
  Receipt Date: 20150803
  Transmission Date: 20151125
  Serious: Yes (Hospitalization)
  Sender: FDA-Public Use
  Company Number: CH-TEVA-577555ISR

PATIENT
  Age: 2 Year
  Sex: Male
  Weight: 12 kg

DRUGS (6)
  1. KEPPRA [Concomitant]
     Active Substance: LEVETIRACETAM
     Dosage: 220 MILLIGRAM DAILY; CONTINUING
     Route: 048
     Dates: start: 20150114, end: 20150216
  2. KEPPRA [Concomitant]
     Active Substance: LEVETIRACETAM
     Indication: EPILEPSY
     Dosage: 300 MILLIGRAM DAILY; CONTINUING
     Route: 048
     Dates: start: 20150217
  3. METHOTREXATE (METHOTREXATE SODIUM) [Suspect]
     Active Substance: METHOTREXATE SODIUM
     Indication: B PRECURSOR TYPE ACUTE LEUKAEMIA
     Dosage: 10 MILLIGRAM DAILY;
     Route: 037
  4. VINCRISTINE TEVA [Suspect]
     Active Substance: VINCRISTINE
     Indication: B PRECURSOR TYPE ACUTE LEUKAEMIA
     Dosage: 1.5 MG/M2 DAILY;
     Route: 041
  5. BACTRIM [Concomitant]
     Active Substance: SULFAMETHOXAZOLE\TRIMETHOPRIM
     Indication: ANTIFUNGAL PROPHYLAXIS
     Route: 048
     Dates: start: 20140616
  6. METHOTREXAT-TEVA 50 MG/2 ML [Suspect]
     Active Substance: METHOTREXATE
     Indication: B PRECURSOR TYPE ACUTE LEUKAEMIA
     Dosage: 100 MG/M2 DAILY;
     Route: 041
     Dates: start: 201408

REACTIONS (7)
  - Leukoencephalopathy [Recovered/Resolved with Sequelae]
  - Confusional state [Recovered/Resolved]
  - Tremor [Recovered/Resolved]
  - Confusional state [Recovered/Resolved]
  - Hemiparesis [Recovered/Resolved]
  - Complex partial seizures [Recovered/Resolved with Sequelae]
  - Status epilepticus [Recovered/Resolved]

NARRATIVE: CASE EVENT DATE: 20150114
